FAERS Safety Report 8569975-3 (Version None)
Quarter: 2012Q3

REPORT INFORMATION
  Report Type: 
  Country: None (occurrence: None)
  Receive Date: 20120803
  Receipt Date: 20120523
  Transmission Date: 20120928
  Serious: No
  Sender: FDA-Public Use
  Company Number: US-ABBOTT-12P-163-0939673-00

PATIENT
  Sex: Female

DRUGS (7)
  1. AMILORIDE HCL AND HYDROCHLOROTHIAZIDE [Concomitant]
     Indication: HYPERTENSION
  2. ZANTAC [Concomitant]
     Indication: PRODUCT USED FOR UNKNOWN INDICATION
  3. ACCUPRIL [Concomitant]
     Indication: PRODUCT USED FOR UNKNOWN INDICATION
  4. JANUMET [Concomitant]
     Indication: DIABETES MELLITUS
  5. GLUCOTROL [Concomitant]
     Indication: DIABETES MELLITUS
  6. CLONAZEPAM [Concomitant]
     Indication: FIBROMYALGIA
  7. NIASPAN [Suspect]
     Indication: BLOOD CHOLESTEROL INCREASED
     Dates: start: 20100401, end: 20111201

REACTIONS (2)
  - DIARRHOEA [None]
  - WEIGHT DECREASED [None]
